FAERS Safety Report 11038033 (Version 1)
Quarter: 2015Q2

REPORT INFORMATION
  Report Type: Other
  Country: GB (occurrence: GB)
  Receive Date: 20150416
  Receipt Date: 20150416
  Transmission Date: 20150821
  Serious: Yes (Other)
  Sender: FDA-Public Use
  Company Number: GB-MYLANLABS-2015M1010927

PATIENT

DRUGS (1)
  1. OMEPRAZOLE. [Suspect]
     Active Substance: OMEPRAZOLE
     Indication: REFLUX LARYNGITIS
     Dosage: 20 MG, BID
     Route: 048
     Dates: start: 20150310, end: 20150314

REACTIONS (6)
  - Dyspnoea [Recovered/Resolved]
  - Confusional state [Recovered/Resolved]
  - Dry mouth [Recovered/Resolved]
  - Anxiety [Recovered/Resolved]
  - Dysphagia [Recovered/Resolved]
  - Fatigue [Recovered/Resolved]

NARRATIVE: CASE EVENT DATE: 20150314
